FAERS Safety Report 7490335-0 (Version None)
Quarter: 2011Q2

REPORT INFORMATION
  Report Type: 
  Country: None (occurrence: None)
  Receive Date: 20110519
  Receipt Date: 20110509
  Transmission Date: 20111010
  Serious: Yes (Hospitalization)
  Sender: FDA-Public Use
  Company Number: DE-KINGPHARMUSA00001-K201100564

PATIENT
  Age: 65 Year
  Sex: Male

DRUGS (2)
  1. TAPAZOLE [Suspect]
     Dosage: 40 MG, BID
     Route: 048
  2. TAPAZOLE [Suspect]
     Indication: BASEDOW'S DISEASE
     Dosage: 40 MG, TID
     Route: 048

REACTIONS (8)
  - TACHYCARDIA [None]
  - ACTIVATED PARTIAL THROMBOPLASTIN TIME PROLONGED [None]
  - FATIGUE [None]
  - ANAEMIA [None]
  - GASTRIC HAEMORRHAGE [None]
  - MELAENA [None]
  - COAGULATION FACTOR DECREASED [None]
  - INTERNATIONAL NORMALISED RATIO INCREASED [None]
